FAERS Safety Report 18477642 (Version 1)
Quarter: 2020Q4

REPORT INFORMATION
  Report Type: Other
  Country: CA (occurrence: CA)
  Receive Date: 20201107
  Receipt Date: 20201107
  Transmission Date: 20210114
  Serious: Yes (Hospitalization, Other)
  Sender: FDA-Public Use
  Company Number: CA-CELLTRION INC.-2020CA030419

PATIENT

DRUGS (17)
  1. IBUPROFEN. [Concomitant]
     Active Substance: IBUPROFEN
  2. METHYLPREDNISOLONE. [Concomitant]
     Active Substance: METHYLPREDNISOLONE
     Indication: PREMEDICATION
     Dosage: 100.0 MILLIGRAM
     Route: 042
  3. PERINDOPRIL [Concomitant]
     Active Substance: PERINDOPRIL
  4. DIPHENHYDRAMINE HYDROCHLORIDE. [Concomitant]
     Active Substance: DIPHENHYDRAMINE HYDROCHLORIDE
     Indication: PREMEDICATION
     Dosage: 50.0 MILLIGRAM
     Route: 048
  5. ENBREL [Concomitant]
     Active Substance: ETANERCEPT
  6. FOLIC ACID. [Concomitant]
     Active Substance: FOLIC ACID
  7. METFORMIN HYDROCHLORIDE;SITAGLIPTIN PHOSPHATE MONOHYDRATE [Concomitant]
     Active Substance: METFORMIN HYDROCHLORIDE\SITAGLIPTIN PHOSPHATE
  8. PREDNISONE. [Concomitant]
     Active Substance: PREDNISONE
     Indication: ARTHRITIS
     Dosage: 10.0 MILLIGRAM
     Route: 065
  9. RITUXIMAB (UNKNOWN) [Suspect]
     Active Substance: RITUXIMAB
     Indication: RHEUMATOID ARTHRITIS
     Dosage: 1000.0 MILLIGRAM
     Route: 042
  10. APO-METFORMIN [Concomitant]
     Active Substance: METFORMIN HYDROCHLORIDE
  11. CRESTOR [Concomitant]
     Active Substance: ROSUVASTATIN CALCIUM
  12. EZETROL [Concomitant]
     Active Substance: EZETIMIBE
  13. ACETYLSALICYLIC ACID [Concomitant]
     Active Substance: ASPIRIN
     Dosage: 81.0 MILLIGRAM
     Route: 065
  14. METFORMIN [Concomitant]
     Active Substance: METFORMIN HYDROCHLORIDE
     Route: 065
  15. METHOTREXATE. [Concomitant]
     Active Substance: METHOTREXATE
  16. ACETAMINOPHEN. [Concomitant]
     Active Substance: ACETAMINOPHEN
     Indication: PREMEDICATION
     Dosage: 650.0 MILLIGRAM
     Route: 048
  17. TIAZAC [Concomitant]
     Active Substance: DILTIAZEM HYDROCHLORIDE

REACTIONS (15)
  - Blood pressure systolic increased [Not Recovered/Not Resolved]
  - Abdominal pain lower [Not Recovered/Not Resolved]
  - Weight decreased [Not Recovered/Not Resolved]
  - Nausea [Not Recovered/Not Resolved]
  - Rectal cancer [Not Recovered/Not Resolved]
  - Blood pressure increased [Not Recovered/Not Resolved]
  - Arthritis [Not Recovered/Not Resolved]
  - Cataract [Not Recovered/Not Resolved]
  - Weight increased [Not Recovered/Not Resolved]
  - Blood test abnormal [Not Recovered/Not Resolved]
  - Pain [Not Recovered/Not Resolved]
  - Adenocarcinoma [Not Recovered/Not Resolved]
  - Blood pressure diastolic decreased [Not Recovered/Not Resolved]
  - Hernia [Not Recovered/Not Resolved]
  - Intestinal obstruction [Not Recovered/Not Resolved]
